FAERS Safety Report 21793191 (Version 3)
Quarter: 2023Q1

REPORT INFORMATION
  Report Type: Spontaneous
  Country: US (occurrence: US)
  Receive Date: 20221229
  Receipt Date: 20230227
  Transmission Date: 20230418
  Serious: No
  Sender: FDA-Public Use
  Company Number: US-PFIZER INC-PV202200076057

PATIENT
  Age: 38 Year
  Sex: Male

DRUGS (1)
  1. SOMAVERT [Suspect]
     Active Substance: PEGVISOMANT
     Indication: Acromegaly
     Dosage: INJECT 30MG 2 DAYS A WEEK
     Route: 058
     Dates: start: 20221117

REACTIONS (4)
  - Off label use [Unknown]
  - Product dose omission issue [Unknown]
  - Injection site pruritus [Unknown]
  - Insulin-like growth factor abnormal [Unknown]

NARRATIVE: CASE EVENT DATE: 20220101
